FAERS Safety Report 8020114-7 (Version None)
Quarter: 2012Q1

REPORT INFORMATION
  Report Type: 
  Country: None (occurrence: None)
  Receive Date: 20120103
  Receipt Date: 20111220
  Transmission Date: 20120608
  Serious: Yes (Hospitalization)
  Sender: FDA-Public Use
  Company Number: JP-PFIZER INC-2011303715

PATIENT
  Age: 76 Year
  Sex: Male

DRUGS (13)
  1. NIFEDIPINE [Suspect]
     Indication: HYPERTENSION
     Dosage: 20 MG, 1 TABLET DAILY
     Route: 048
  2. ENALAPRIL MALEATE [Suspect]
     Indication: HYPERTENSION
     Dosage: 5 MG, 1 TABLET DAILY
     Route: 048
  3. ASPIRIN [Concomitant]
     Dosage: 100 MG, 1 TABET DAILY
     Route: 048
  4. LOSARTAN POTASSIUM AND HYDROCHLOROTHIAZIDE [Suspect]
     Indication: HYPERTENSION
     Dosage: 1 DF, DAILY
  5. CLONAZEPAM [Concomitant]
     Dosage: 0.5 MG, 1 TABLET DAILY
     Route: 048
  6. VALPROATE SODIUM [Concomitant]
     Dosage: 800 MG DAILY, 4 TABLETS OF 200MG DAILY
     Route: 048
  7. SPIRONOLACTONE [Suspect]
     Dosage: 25 MG, 1 TABLET DAILY
     Route: 048
  8. CARVEDILOL [Suspect]
     Indication: HYPERTENSION
     Dosage: 2.5 MG, 1 TABLET DAILY
     Route: 048
  9. FUROSEMIDE [Suspect]
     Indication: HYPERTENSION
     Dosage: 40 MG, 1 TABLET DAILY
     Route: 048
  10. LANSOPRAZOLE [Concomitant]
     Dosage: 15 MG, 1 TABLET DAILY
     Route: 048
  11. LYRICA [Concomitant]
     Dosage: 25 MG, 2X/DAY
     Route: 048
  12. ZOLPIDEM [Concomitant]
     Dosage: 10 MG, 1 TABLET DAILY
     Route: 048
  13. CILOSTAZOL [Concomitant]
     Dosage: 100 MG DAILY, 2 TABLETS OF 50MG DAILY
     Route: 048

REACTIONS (3)
  - ACUTE PRERENAL FAILURE [None]
  - DEHYDRATION [None]
  - BLOOD PRESSURE DECREASED [None]
